FAERS Safety Report 12069854 (Version 1)
Quarter: 2016Q1

REPORT INFORMATION
  Report Type: Spontaneous
  Country: GB (occurrence: GB)
  Receive Date: 20160211
  Receipt Date: 20160211
  Transmission Date: 20160526
  Serious: Yes (Hospitalization, Disabling, Other)
  Sender: FDA-Public Use
  Company Number: GB-TEVA-631941ACC

PATIENT
  Age: 86 Year
  Sex: Female
  Weight: 76.6 kg

DRUGS (3)
  1. GLICLAZIDE [Concomitant]
     Active Substance: GLICLAZIDE
  2. SIMVASTATIN. [Suspect]
     Active Substance: SIMVASTATIN
     Route: 048
     Dates: end: 20160109
  3. VILDAGLIPTIN [Concomitant]
     Active Substance: VILDAGLIPTIN

REACTIONS (1)
  - Pulmonary fibrosis [Not Recovered/Not Resolved]
